FAERS Safety Report 5412401-3 (Version None)
Quarter: 2007Q3

REPORT INFORMATION
  Report Type: 
  Country: None (occurrence: None)
  Receive Date: 20070809
  Receipt Date: 20070725
  Transmission Date: 20080115
  Serious: Yes (Hospitalization)
  Sender: FDA-Public Use
  Company Number: 2007BM000068

PATIENT
  Age: 7 Year
  Sex: Female
  Weight: 21.3 kg

DRUGS (21)
  1. NAGLAZYME (GALSULFASE) SOLUTION (EXCEPT SYRUP), 1.0MG/ML [Suspect]
     Indication: MUCOPOLYSACCHARIDOSIS VI
     Dosage: 1 MG/KG; QW; IV
     Route: 042
     Dates: start: 20060420
  2. NAGLAZYME (GALSULFASE) SOLUTION (EXCEPT SYRUP), 1.0MG/ML [Suspect]
  3. METHYLPHENIDATE HCL [Suspect]
     Dosage: 2.5 MG; BID; PO, 10 MG; QD; PO
     Route: 048
     Dates: start: 20070305
  4. METHYLPHENIDATE HCL [Suspect]
     Dosage: 2.5 MG; BID; PO, 10 MG; QD; PO
     Route: 048
     Dates: start: 20070713
  5. METHYLPHENIDATE HCL [Concomitant]
  6. PREDNISONE TAB [Concomitant]
  7. LANSOPRAZOLE [Concomitant]
  8. CALCIUM CARBONATE [Concomitant]
  9. DIPHENHYDRAMINE HCL [Concomitant]
  10. CLONIDINE HCL [Concomitant]
  11. HYDROCORTISONE SODIUM SUCCINATE [Concomitant]
  12. ACETAMINOPHEN [Concomitant]
  13. TETRACOSACTIDE [Concomitant]
  14. URSODIOL [Concomitant]
  15. ENALAPRIL [Concomitant]
  16. NIFEDIPINE [Concomitant]
  17. NIFEDIPINE [Concomitant]
  18. HYDRALAZINE HCL [Concomitant]
  19. ATENOLOL [Concomitant]
  20. PRAZOSIN HCL [Concomitant]
  21. CLONIDINE [Concomitant]

REACTIONS (20)
  - ABDOMINAL PAIN [None]
  - ACTIVATED PARTIAL THROMBOPLASTIN TIME PROLONGED [None]
  - AORTIC VALVE INCOMPETENCE [None]
  - CARPAL TUNNEL SYNDROME [None]
  - CONDITION AGGRAVATED [None]
  - DISEASE RECURRENCE [None]
  - GASTROINTESTINAL HAEMORRHAGE [None]
  - HAEMATOCHEZIA [None]
  - HEADACHE [None]
  - INFUSION RELATED REACTION [None]
  - LEFT VENTRICULAR HYPERTROPHY [None]
  - MALIGNANT HYPERTENSION [None]
  - MASTOIDITIS [None]
  - MITRAL VALVE INCOMPETENCE [None]
  - OPTIC DISCS BLURRED [None]
  - PYREXIA [None]
  - RASH ERYTHEMATOUS [None]
  - SLEEP DISORDER [None]
  - TRIGGER FINGER [None]
  - URTICARIA [None]
